FAERS Safety Report 24213884 (Version 1)
Quarter: 2024Q3

REPORT INFORMATION
  Report Type: Spontaneous
  Country: US (occurrence: None)
  Receive Date: 20240814
  Receipt Date: 20240814
  Transmission Date: 20241016
  Serious: No
  Sender: Public
  Company Number: None

PATIENT
  Age: 75 Year
  Sex: Female
  Weight: 51.75 kg

DRUGS (1)
  1. MAGNESIUM SULFATE\POTASSIUM SULFATE\SODIUM SULFATE [Suspect]
     Active Substance: MAGNESIUM SULFATE\POTASSIUM SULFATE\SODIUM SULFATE
     Indication: Colonoscopy
     Dosage: OTHER FREQUENCY : SPLIT DOSE?
     Route: 048
     Dates: start: 20240811, end: 20240812

REACTIONS (2)
  - Vomiting [None]
  - Dizziness [None]

NARRATIVE: CASE EVENT DATE: 20240811
